FAERS Safety Report 9716753 (Version 1)
Quarter: 2013Q4

REPORT INFORMATION
  Report Type: Spontaneous
  Country: DE (occurrence: DE)
  Receive Date: 20131127
  Receipt Date: 20131127
  Transmission Date: 20140711
  Serious: Yes (Hospitalization)
  Sender: FDA-Public Use
  Company Number: DE-ASTRAZENECA-2013SE81534

PATIENT
  Age: 63 Year
  Sex: Male

DRUGS (7)
  1. SEROQUEL PROLONG [Suspect]
     Route: 048
     Dates: start: 20120828, end: 20120829
  2. SEROQUEL PROLONG [Suspect]
     Route: 048
     Dates: start: 20120829, end: 20120904
  3. SEROQUEL PROLONG [Suspect]
     Route: 048
     Dates: start: 20120828, end: 20120829
  4. JANUVIA [Concomitant]
     Route: 048
     Dates: start: 2011
  5. PANTOZOL [Concomitant]
     Route: 048
     Dates: start: 20120830
  6. TAVOR [Concomitant]
     Route: 048
     Dates: start: 20120828, end: 20121005
  7. METFORMIN [Concomitant]
     Route: 048
     Dates: start: 2011

REACTIONS (1)
  - Subileus [Recovered/Resolved]
